FAERS Safety Report 6099945-9 (Version None)
Quarter: 2009Q1

REPORT INFORMATION
  Report Type: 
  Country: None (occurrence: None)
  Receive Date: 20090227
  Receipt Date: 20090227
  Transmission Date: 20090719
  Serious: Yes (Other)
  Sender: FDA-Public Use
  Company Number: None

PATIENT
  Age: 15 Year

DRUGS (1)
  1. DEPAKOTE TAB, ENTERIC COATED [Suspect]
     Indication: CONVULSION
     Dosage: AS ABOVE MORE THAN A YEAR

REACTIONS (2)
  - AMMONIA INCREASED [None]
  - CONFUSIONAL STATE [None]
